FAERS Safety Report 8411978-3 (Version None)
Quarter: 2012Q2

REPORT INFORMATION
  Report Type: 
  Country: None (occurrence: None)
  Receive Date: 20120605
  Receipt Date: 20120517
  Transmission Date: 20120825
  Serious: Yes (Other)
  Sender: FDA-Public Use
  Company Number: US-AMGEN-USASP2012031141

PATIENT
  Sex: Male

DRUGS (2)
  1. ENBREL [Suspect]
     Indication: RHEUMATOID ARTHRITIS
     Dosage: 50 MG, QWK
     Route: 058
  2. LASIX [Concomitant]
     Dosage: UNK

REACTIONS (4)
  - TUBERCULIN TEST POSITIVE [None]
  - OEDEMA PERIPHERAL [None]
  - HYPOAESTHESIA [None]
  - BACK PAIN [None]
